FAERS Safety Report 8315331-2 (Version None)
Quarter: 2012Q2

REPORT INFORMATION
  Report Type: 
  Country: None (occurrence: None)
  Receive Date: 20120426
  Receipt Date: 20120419
  Transmission Date: 20120825
  Serious: Yes (Other)
  Sender: FDA-Public Use
  Company Number: US-ELI_LILLY_AND_COMPANY-US201204007489

PATIENT
  Age: 42 Year
  Sex: Male

DRUGS (2)
  1. HUMALOG [Suspect]
     Indication: DIABETES MELLITUS
     Dosage: UNK
     Dates: start: 20080101
  2. LANTUS [Concomitant]
     Dosage: 30 U, EACH MORNING

REACTIONS (2)
  - BLOOD GLUCOSE ABNORMAL [None]
  - RENAL FAILURE [None]
